FAERS Safety Report 4540639-6 (Version None)
Quarter: 2004Q4

REPORT INFORMATION
  Report Type: 
  Country: None (occurrence: None)
  Receive Date: 20041222
  Receipt Date: 20041208
  Transmission Date: 20050328
  Serious: Yes (Life-Threatening, Hospitalization)
  Sender: FDA-Public Use
  Company Number: 2004EU001999

PATIENT
  Age: 5 Month
  Sex: Male

DRUGS (3)
  1. PROTOPIC [Suspect]
     Indication: DERMATITIS ATOPIC
     Dosage: SEE IMAGE
     Route: 061
     Dates: start: 20040714, end: 20040724
  2. PROTOPIC [Suspect]
     Indication: DERMATITIS ATOPIC
     Dosage: SEE IMAGE
     Route: 061
     Dates: start: 20040725, end: 20040728
  3. PROTOPIC [Suspect]
     Indication: DERMATITIS ATOPIC
     Dosage: SEE IMAGE
     Route: 061
     Dates: start: 20040729

REACTIONS (13)
  - ALOPECIA [None]
  - CEREBRAL VENTRICLE DILATATION [None]
  - COORDINATION ABNORMAL [None]
  - DEVELOPMENTAL COORDINATION DISORDER [None]
  - DIARRHOEA [None]
  - HERPES SIMPLEX SEROLOGY POSITIVE [None]
  - HYPOTONIA [None]
  - MYOCLONUS [None]
  - NETHERTON'S SYNDROME [None]
  - PANCYTOPENIA [None]
  - RHINITIS [None]
  - TREMOR [None]
  - VIRAL INFECTION [None]
